FAERS Safety Report 8815994 (Version 1)
Quarter: 2012Q4

REPORT INFORMATION
  Report Type: 
  Country: US (occurrence: US)
  Receive Date: 20120928
  Receipt Date: 20120928
  Transmission Date: 20130627
  Serious: No
  Sender: FDA-Public Use
  Company Number: US-VIIV HEALTHCARE LIMITED-A0972454A

PATIENT
  Sex: Female

DRUGS (7)
  1. EPZICOM [Suspect]
     Indication: HIV INFECTION
     Dosage: 600MG Per day
     Route: 048
     Dates: start: 20110222
  2. SUSTIVA [Concomitant]
  3. MVI [Concomitant]
  4. VITAMIN D3 [Concomitant]
  5. REMERON [Concomitant]
  6. AMBIEN [Concomitant]
  7. METHADONE [Concomitant]

REACTIONS (3)
  - Abdominal discomfort [Unknown]
  - Drug interaction [Unknown]
  - Drug withdrawal syndrome [Unknown]
